FAERS Safety Report 5970273-2 (Version None)
Quarter: 2008Q4

REPORT INFORMATION
  Report Type: 
  Country: None (occurrence: None)
  Receive Date: 20081126
  Receipt Date: 20081025
  Transmission Date: 20090506
  Serious: Yes (Other)
  Sender: FDA-Public Use
  Company Number: US-PFIZER INC-2008098530

PATIENT
  Sex: Female
  Weight: 66.7 kg

DRUGS (9)
  1. LYRICA [Suspect]
     Indication: FIBROMYALGIA
     Dates: start: 20080801, end: 20081020
  2. SPIRIVA [Suspect]
     Indication: CHRONIC OBSTRUCTIVE PULMONARY DISEASE
  3. EFFEXOR [Suspect]
  4. SOMA [Concomitant]
  5. LORTAB [Concomitant]
  6. REMERON [Concomitant]
  7. TRAZODONE HCL [Concomitant]
     Dates: start: 20081022
  8. LIPITOR [Concomitant]
  9. DIAZEPAM [Concomitant]

REACTIONS (7)
  - DYSPNOEA [None]
  - LOCAL SWELLING [None]
  - OEDEMA PERIPHERAL [None]
  - POLYP [None]
  - SUICIDAL IDEATION [None]
  - SWELLING FACE [None]
  - WEIGHT INCREASED [None]
